FAERS Safety Report 23480037 (Version 1)
Quarter: 2024Q1

REPORT INFORMATION
  Report Type: Spontaneous
  Country: GB (occurrence: GB)
  Receive Date: 20240205
  Receipt Date: 20240205
  Transmission Date: 20240410
  Serious: Yes (Other)
  Sender: FDA-Public Use
  Company Number: GB-MHRA-TPP31633187C7969924YC1705571661234

PATIENT
  Age: 68 Year
  Sex: Male
  Weight: 57 kg

DRUGS (5)
  1. CIPROFLOXACIN [Suspect]
     Active Substance: CIPROFLOXACIN
     Indication: Product used for unknown indication
     Dosage: 500 MILLIGRAM, TWO TIMES A DAY, FOR 14 DAYS, TO TRE...
     Route: 065
     Dates: start: 20240115
  2. FINASTERIDE [Concomitant]
     Active Substance: FINASTERIDE
     Indication: Product used for unknown indication
     Dosage: 1 DOSAGE FORM, ONCE A DAY
     Route: 065
     Dates: start: 20240103
  3. NITROFURANTOIN [Concomitant]
     Active Substance: NITROFURANTOIN
     Indication: Product used for unknown indication
     Dosage: 100 MILLIGRAM, TWO TIMES A DAY, FOR 7 DAYS
     Route: 065
     Dates: start: 20231227, end: 20240103
  4. TAMSULOSIN HYDROCHLORIDE [Concomitant]
     Active Substance: TAMSULOSIN HYDROCHLORIDE
     Indication: Product used for unknown indication
     Dosage: 1 DOSAGE FORM, ONCE A DAY, TO IMPROVE URINARY SYMPTOMS
     Route: 065
     Dates: start: 20231005
  5. TRIMETHOPRIM [Concomitant]
     Active Substance: TRIMETHOPRIM
     Indication: Product used for unknown indication
     Dosage: 1 DOSAGE FORM, TWO TIMES A DAY, FOR 14 DAYS, TO TREAT ...
     Route: 065
     Dates: start: 20240118

REACTIONS (4)
  - Tendon disorder [Unknown]
  - Paraesthesia [Unknown]
  - Acute polyneuropathy [Recovering/Resolving]
  - Tendonitis [Recovering/Resolving]
